FAERS Safety Report 7808476-4 (Version None)
Quarter: 2011Q4

REPORT INFORMATION
  Report Type: 
  Country: None (occurrence: None)
  Receive Date: 20111012
  Receipt Date: 20110930
  Transmission Date: 20120403
  Serious: Yes (Hospitalization)
  Sender: FDA-Public Use
  Company Number: US-JNJFOC-20110908711

PATIENT
  Sex: Male
  Weight: 94.35 kg

DRUGS (8)
  1. CALCIUM CARBONATE [Concomitant]
     Indication: DYSPEPSIA
  2. NAPROXEN [Concomitant]
     Indication: PAIN
  3. MAGNESIUM [Concomitant]
     Route: 048
  4. ATENOLOL [Concomitant]
     Indication: HYPERTENSION
     Route: 048
  5. CYCLOSPORINE [Suspect]
     Indication: PSORIASIS
     Route: 048
  6. COZAAR [Concomitant]
     Indication: HYPERTENSION
     Route: 048
  7. INFLIXIMAB, RECOMBINANT [Suspect]
     Indication: PSORIASIS
     Route: 042
     Dates: start: 20100701, end: 20101201
  8. TRAZODONE HYDROCHLORIDE [Concomitant]
     Route: 048

REACTIONS (1)
  - TRANSIENT ISCHAEMIC ATTACK [None]
